FAERS Safety Report 14256058 (Version 3)
Quarter: 2020Q3

REPORT INFORMATION
  Report Type: Report from Study
  Country: BR (occurrence: BR)
  Receive Date: 20171206
  Receipt Date: 20200804
  Transmission Date: 20201102
  Serious: Yes (Life-Threatening, Hospitalization, Other)
  Sender: FDA-Public Use
  Company Number: PHHY2015BR124888

PATIENT
  Age: 51 Year
  Sex: Female
  Weight: 96 kg

DRUGS (15)
  1. SANDOSTATIN LAR DEPOT [Suspect]
     Active Substance: OCTREOTIDE ACETATE
     Dosage: 20 MG, QMO(2 AMPOULES)
     Route: 030
  2. LOSARTAN. [Suspect]
     Active Substance: LOSARTAN
     Dosage: 50 MG, BID
     Route: 048
  3. SANDOSTATIN LAR DEPOT [Suspect]
     Active Substance: OCTREOTIDE ACETATE
     Dosage: 30 MG, QMO(AMPOULE)
     Route: 030
     Dates: end: 2018
  4. LOSARTAN. [Suspect]
     Active Substance: LOSARTAN
     Indication: HYPERTENSION
     Dosage: 2 DF, QD
     Route: 048
  5. HYDROCHLOROTHIAZIDE. [Concomitant]
     Active Substance: HYDROCHLOROTHIAZIDE
     Indication: BLOOD PRESSURE INCREASED
     Dosage: 1 DF, QD
     Route: 048
  6. ENALAPRIL [Concomitant]
     Active Substance: ENALAPRIL
     Indication: BLOOD PRESSURE INCREASED
     Dosage: 2 DF, BID
     Route: 048
  7. NPH INSULIN [Concomitant]
     Active Substance: INSULIN BEEF
     Indication: DIABETES MELLITUS
     Dosage: 20 UL, QD(IN THE NIGHT)
     Route: 058
  8. SANDOSTATIN LAR DEPOT [Suspect]
     Active Substance: OCTREOTIDE ACETATE
     Indication: ACROMEGALY
     Dosage: 30 MG
     Route: 030
     Dates: start: 20130101
  9. SANDOSTATIN LAR DEPOT [Suspect]
     Active Substance: OCTREOTIDE ACETATE
     Dosage: 30 MG, QMO
     Route: 030
  10. SANDOSTATIN LAR DEPOT [Suspect]
     Active Substance: OCTREOTIDE ACETATE
     Dosage: UNK (2 INJECTIONS, STOP:1 YEAR AGO)
     Route: 065
  11. GLIFAGE [Concomitant]
     Active Substance: METFORMIN HYDROCHLORIDE
     Indication: DIABETES MELLITUS
     Dosage: 4 DF, QD
     Route: 048
  12. SANDOSTATIN LAR DEPOT [Suspect]
     Active Substance: OCTREOTIDE ACETATE
     Dosage: 20 MG, UNK
     Route: 030
     Dates: start: 2013
  13. CABERGOLINE. [Concomitant]
     Active Substance: CABERGOLINE
     Indication: ACROMEGALY
     Dosage: 3 DF, QW
     Route: 048
  14. SANDOSTATIN LAR DEPOT [Suspect]
     Active Substance: OCTREOTIDE ACETATE
     Dosage: 40 MG, UNK
     Route: 030
  15. HYDROCHLOROTHIAZIDE. [Concomitant]
     Active Substance: HYDROCHLOROTHIAZIDE
     Indication: HYPERTENSION

REACTIONS (14)
  - Application site pain [Recovered/Resolved]
  - Malaise [Unknown]
  - Choking [Not Recovered/Not Resolved]
  - Dysphonia [Recovered/Resolved]
  - Haemorrhage [Recovering/Resolving]
  - Procedural complication [Recovered/Resolved]
  - Swelling [Recovering/Resolving]
  - Tumour compression [Recovered/Resolved]
  - Vomiting [Recovered/Resolved]
  - Polydipsia [Unknown]
  - Thyroid mass [Recovered/Resolved]
  - Goitre [Recovering/Resolving]
  - Blood pressure increased [Not Recovered/Not Resolved]
  - Near death experience [Recovered/Resolved]

NARRATIVE: CASE EVENT DATE: 20151013
